FAERS Safety Report 15830466 (Version 3)
Quarter: 2019Q4

REPORT INFORMATION
  Report Type: Spontaneous
  Country: US (occurrence: US)
  Receive Date: 20190115
  Receipt Date: 20191210
  Transmission Date: 20200122
  Serious: No
  Sender: FDA-Public Use
  Company Number: US-SA-2019SA011381

PATIENT
  Age: 51 Year
  Sex: Female

DRUGS (4)
  1. CERDELGA [Suspect]
     Active Substance: ELIGLUSTAT
     Indication: GAUCHER^S DISEASE
     Dosage: 84 MG, BID
     Route: 048
     Dates: start: 20180927
  2. COLCHICINE. [Interacting]
     Active Substance: COLCHICINE
     Indication: GOUT
     Dosage: UNK UNK, UNK
     Route: 065
  3. CERDELGA [Interacting]
     Active Substance: ELIGLUSTAT
     Dosage: 84 MG, BID
     Route: 048
  4. CERDELGA [Interacting]
     Active Substance: ELIGLUSTAT
     Dosage: 84 UNK
     Route: 048
     Dates: start: 20190725

REACTIONS (6)
  - Product dose omission [Unknown]
  - Gout [Unknown]
  - Malaise [Unknown]
  - Productive cough [Unknown]
  - Drug interaction [Unknown]
  - Gastrooesophageal reflux disease [Unknown]

NARRATIVE: CASE EVENT DATE: 201811
